FAERS Safety Report 9947808 (Version 1)
Quarter: 2014Q1

REPORT INFORMATION
  Report Type: Spontaneous
  Country: US (occurrence: None)
  Receive Date: 20140122
  Receipt Date: 20140122
  Transmission Date: 20141002
  Serious: No
  Sender: FDA-Public Use
  Company Number: AP356-00153-SPO-US

PATIENT
  Age: 61 Year
  Sex: Female
  Weight: 73.1 kg

DRUGS (1)
  1. BELVIQ [Suspect]
     Indication: WEIGHT DECREASED
     Route: 048
     Dates: start: 20131009, end: 2013

REACTIONS (2)
  - Nausea [None]
  - Dizziness [None]
